FAERS Safety Report 6185614-3 (Version None)
Quarter: 2009Q2

REPORT INFORMATION
  Report Type: 
  Country: None (occurrence: None)
  Receive Date: 20090511
  Receipt Date: 20090429
  Transmission Date: 20091009
  Serious: Yes (Hospitalization, Other)
  Sender: FDA-Public Use
  Company Number: US-PFIZER INC-2009205767

PATIENT
  Sex: Female

DRUGS (1)
  1. CALAN [Suspect]

REACTIONS (2)
  - DRUG INEFFECTIVE [None]
  - SURGERY [None]
